FAERS Safety Report 9548950 (Version 2)
Quarter: 2013Q3

REPORT INFORMATION
  Report Type: Spontaneous
  Country: US (occurrence: US)
  Receive Date: 20130924
  Receipt Date: 20130924
  Transmission Date: 20140515
  Serious: Yes (Hospitalization, Other)
  Sender: FDA-Public Use
  Company Number: PHHY2013US101940

PATIENT
  Age: 21 Year
  Sex: Male

DRUGS (1)
  1. DEFERASIROX [Suspect]
     Indication: IRON OVERLOAD
     Dosage: 1125 MG, DAILY
     Dates: start: 201106

REACTIONS (14)
  - Pain [Unknown]
  - Decreased appetite [Unknown]
  - Abdominal pain [Unknown]
  - Fanconi syndrome acquired [Unknown]
  - Renal injury [Unknown]
  - Metabolic acidosis [Recovering/Resolving]
  - Electrolyte imbalance [Recovering/Resolving]
  - Hypokalaemia [Not Recovered/Not Resolved]
  - Hypophosphataemia [Not Recovered/Not Resolved]
  - Nausea [Unknown]
  - Vomiting [Unknown]
  - Renal impairment [Unknown]
  - Glycosuria [Not Recovered/Not Resolved]
  - Proteinuria [Not Recovered/Not Resolved]
